FAERS Safety Report 8469120 (Version 2)
Quarter: 2012Q4

REPORT INFORMATION
  Report Type: 
  Country: US (occurrence: US)
  Receive Date: 20120321
  Receipt Date: 20121211
  Transmission Date: 20130627
  Serious: No
  Sender: FDA-Public Use
  Company Number: US-PFIZER INC-2012070177

PATIENT
  Age: 55 Year
  Sex: Male
  Weight: 159 kg

DRUGS (7)
  1. XALKORI [Suspect]
     Indication: LUNG CANCER
     Dosage: 250 mg, 2x/day
     Route: 048
     Dates: start: 20120309
  2. REVATIO [Concomitant]
     Indication: PULMONARY HYPERTENSION
     Dosage: 20 mg, 3x/day
  3. LETAIRIS [Concomitant]
     Indication: PULMONARY ARTERIAL HYPERTENSION
     Dosage: 5 mg, daily
     Dates: start: 2011
  4. ARIXTRA [Concomitant]
     Indication: PULMONARY EMBOLISM
     Dosage: 10 mg, 1x/day
     Dates: start: 2011
  5. ARIXTRA [Concomitant]
     Indication: DVT
  6. VICODIN [Concomitant]
     Indication: PAIN
     Dosage: 10/325 mg, every 6 hours
  7. DEMADEX [Concomitant]
     Indication: WATER RETENTION
     Dosage: 20 mg, 2x/day

REACTIONS (1)
  - Nausea [Recovered/Resolved]
